FAERS Safety Report 8365482-1 (Version None)
Quarter: 2012Q2

REPORT INFORMATION
  Report Type: 
  Country: None (occurrence: None)
  Receive Date: 20120516
  Receipt Date: 20120514
  Transmission Date: 20120825
  Serious: Yes (Death, Hospitalization)
  Sender: FDA-Public Use
  Company Number: PHHY2012GB040816

PATIENT
  Age: 70 Year
  Sex: Female
  Weight: 80 kg

DRUGS (7)
  1. ALLOPURINOL [Concomitant]
  2. PIPERACILLIN AND TAZOBACTAM [Suspect]
     Indication: INFECTION
     Dosage: 4.5 G, BID
     Route: 042
  3. TEICOPLANIN [Concomitant]
     Indication: INFECTION
     Dosage: UNK
     Dates: end: 20120329
  4. CIPROFLOXACIN [Interacting]
     Indication: INFECTION
     Dosage: 1 DF, BID
     Route: 048
     Dates: start: 20110329, end: 20120405
  5. METHOTREXATE [Interacting]
     Indication: PSORIATIC ARTHROPATHY
     Dosage: UNK
     Dates: end: 20120407
  6. GENTAMICIN [Concomitant]
     Indication: INFECTION
     Dosage: UNK
     Dates: end: 20120329
  7. RIFAMPICIN [Concomitant]
     Indication: INFECTION

REACTIONS (15)
  - BLISTER [None]
  - LIVER FUNCTION TEST ABNORMAL [None]
  - IMMUNOSUPPRESSANT DRUG LEVEL INCREASED [None]
  - STEVENS-JOHNSON SYNDROME [None]
  - RASH ERYTHEMATOUS [None]
  - MUCOSAL ULCERATION [None]
  - TACHYCARDIA [None]
  - PANCYTOPENIA [None]
  - INFLAMMATION [None]
  - PAIN [None]
  - PYREXIA [None]
  - SEPSIS [None]
  - DRUG INTERACTION [None]
  - MUCOSAL INFLAMMATION [None]
  - RENAL FAILURE ACUTE [None]
